FAERS Safety Report 11953913 (Version 2)
Quarter: 2016Q1

REPORT INFORMATION
  Report Type: Spontaneous
  Country: BR (occurrence: BR)
  Receive Date: 20160126
  Receipt Date: 20160210
  Transmission Date: 20160526
  Serious: Yes (Other)
  Sender: FDA-Public Use
  Company Number: PHHY2016BR009404

PATIENT
  Sex: Female

DRUGS (4)
  1. FORASEQ [Suspect]
     Active Substance: BUDESONIDE\FORMOTEROL FUMARATE
     Dosage: UNK UNK, BID (SHE USED THREE TIMES A DAY WHEN SHE WAS UNWELL AT 6 AM, 6 PM AND AT MIDNIGHT)
     Route: 055
  2. BIOFENAC//ACECLOFENAC [Concomitant]
     Indication: PAIN IN EXTREMITY
     Route: 065
  3. ATROVENT [Concomitant]
     Active Substance: IPRATROPIUM BROMIDE
     Indication: CHRONIC OBSTRUCTIVE PULMONARY DISEASE
     Dosage: UNK UNK, PRN
     Route: 048
  4. FORASEQ [Suspect]
     Active Substance: BUDESONIDE\FORMOTEROL FUMARATE
     Indication: DYSPNOEA
     Dosage: UNK UNK, BID (AT 6 AM AND AT MIDNIGHT)
     Route: 055

REACTIONS (15)
  - Salivary hypersecretion [Unknown]
  - Gastrooesophageal reflux disease [Not Recovered/Not Resolved]
  - Poor quality sleep [Not Recovered/Not Resolved]
  - Tinnitus [Not Recovered/Not Resolved]
  - Eructation [Unknown]
  - Vocal cord leukoplakia [Not Recovered/Not Resolved]
  - Intervertebral disc protrusion [Not Recovered/Not Resolved]
  - Hernia pain [Unknown]
  - Medication residue present [Unknown]
  - Pulmonary embolism [Unknown]
  - Cataract [Not Recovered/Not Resolved]
  - Throat irritation [Not Recovered/Not Resolved]
  - Dry mouth [Not Recovered/Not Resolved]
  - Concomitant disease aggravated [Not Recovered/Not Resolved]
  - Tooth injury [Not Recovered/Not Resolved]
